APPROVED DRUG PRODUCT: PREDNISOLONE
Active Ingredient: PREDNISOLONE
Strength: 15MG/5ML
Dosage Form/Route: SOLUTION;ORAL
Application: A040313 | Product #001
Applicant: PHARMOBEDIENT CONSULTING
Approved: Sep 10, 2003 | RLD: No | RS: No | Type: DISCN